FAERS Safety Report 8467166 (Version 6)
Quarter: 2014Q4

REPORT INFORMATION
  Report Type: Report from Study
  Country: US (occurrence: US)
  Receive Date: 20120229
  Receipt Date: 20141223
  Transmission Date: 20150529
  Serious: Yes (Hospitalization, Other)
  Sender: FDA-Public Use
  Company Number: PHHY2011US29507

PATIENT
  Sex: Female

DRUGS (4)
  1. NEORAL [Suspect]
     Active Substance: CYCLOSPORINE
     Indication: HEPATIC CIRRHOSIS
     Dosage: 25 MG, UNK
     Route: 048
  2. NEORAL [Suspect]
     Active Substance: CYCLOSPORINE
     Dosage: 100 MG, QD
     Route: 048
  3. NEORAL [Suspect]
     Active Substance: CYCLOSPORINE
     Dosage: 100 MG, BID (ONE CAPSULE EVERY MORNING AND ONE CAPSULE EVERY EVENING)
     Route: 048
  4. NEORAL [Suspect]
     Active Substance: CYCLOSPORINE
     Indication: LIVER TRANSPLANT
     Dosage: 100 MG, BID
     Route: 048
     Dates: start: 20100610

REACTIONS (15)
  - Brain injury [Unknown]
  - Gout [Unknown]
  - Gouty arthritis [Unknown]
  - Amnesia [Unknown]
  - Oesophageal obstruction [Unknown]
  - Bone loss [Unknown]
  - Foreign body [Recovered/Resolved with Sequelae]
  - Feeling abnormal [Unknown]
  - Cognitive disorder [Unknown]
  - Procedural pain [Unknown]
  - Diabetes mellitus [Unknown]
  - Expired product administered [Recovered/Resolved with Sequelae]
  - Nervousness [Unknown]
  - Lower limb fracture [Recovered/Resolved with Sequelae]
  - Renal disorder [Unknown]
